FAERS Safety Report 4708510-4 (Version None)
Quarter: 2005Q3

REPORT INFORMATION
  Report Type: 
  Country: None (occurrence: None)
  Receive Date: 20050705
  Receipt Date: 20050627
  Transmission Date: 20060218
  Serious: Yes (Hospitalization)
  Sender: FDA-Public Use
  Company Number: HQWYE769228JUN05

PATIENT
  Sex: Male

DRUGS (10)
  1. EFFEXOR XR [Suspect]
     Indication: DEPRESSION
     Dosage: SEE IMAGE
     Route: 064
     Dates: start: 19990101, end: 20000101
  2. EFFEXOR XR [Suspect]
     Indication: POST-TRAUMATIC STRESS DISORDER
     Dosage: SEE IMAGE
     Route: 064
     Dates: start: 19990101, end: 20000101
  3. EFFEXOR XR [Suspect]
     Indication: DEPRESSION
     Dosage: SEE IMAGE
     Route: 064
     Dates: end: 20031001
  4. EFFEXOR XR [Suspect]
     Indication: POST-TRAUMATIC STRESS DISORDER
     Dosage: SEE IMAGE
     Route: 064
     Dates: end: 20031001
  5. EFFEXOR XR [Suspect]
     Indication: DEPRESSION
     Dosage: SEE IMAGE
     Route: 064
     Dates: start: 20031001, end: 20031201
  6. EFFEXOR XR [Suspect]
     Indication: POST-TRAUMATIC STRESS DISORDER
     Dosage: SEE IMAGE
     Route: 064
     Dates: start: 20031001, end: 20031201
  7. EFFEXOR XR [Suspect]
     Indication: DEPRESSION
     Dosage: SEE IMAGE
     Route: 064
     Dates: start: 20000101
  8. EFFEXOR XR [Suspect]
     Indication: POST-TRAUMATIC STRESS DISORDER
     Dosage: SEE IMAGE
     Route: 064
     Dates: start: 20000101
  9. EFFEXOR XR [Suspect]
     Indication: DEPRESSION
     Dosage: SEE IMAGE
     Route: 064
     Dates: start: 20031201
  10. EFFEXOR XR [Suspect]
     Indication: POST-TRAUMATIC STRESS DISORDER
     Dosage: SEE IMAGE
     Route: 064
     Dates: start: 20031201

REACTIONS (7)
  - BIRTH TRAUMA [None]
  - CAESAREAN SECTION [None]
  - DRUG EXPOSURE DURING PREGNANCY [None]
  - HORNER'S SYNDROME [None]
  - POLYDACTYLY [None]
  - PREMATURE BABY [None]
  - RESUSCITATION [None]
